FAERS Safety Report 9871347 (Version 2)
Quarter: 2014Q1

REPORT INFORMATION
  Report Type: Report from Study
  Country: US (occurrence: US)
  Receive Date: 20140205
  Receipt Date: 20140226
  Transmission Date: 20141002
  Serious: Yes (Other)
  Sender: FDA-Public Use
  Company Number: US-US-EMD SERONO, INC.-7266337

PATIENT
  Sex: Female
  Weight: 76 kg

DRUGS (2)
  1. REBIF [Suspect]
     Indication: MULTIPLE SCLEROSIS
     Route: 058
     Dates: start: 20020930
  2. AMITRIPTYLINE [Concomitant]
     Indication: PRODUCT USED FOR UNKNOWN INDICATION

REACTIONS (10)
  - Coronary artery occlusion [Recovered/Resolved]
  - Balance disorder [Unknown]
  - Fall [Unknown]
  - Head injury [Unknown]
  - Hypertension [Not Recovered/Not Resolved]
  - Dizziness [Not Recovered/Not Resolved]
  - Burning sensation [Recovering/Resolving]
  - Gait disturbance [Recovering/Resolving]
  - Asthenia [Unknown]
  - Pain [Not Recovered/Not Resolved]
